FAERS Safety Report 24760028 (Version 1)
Quarter: 2024Q4

REPORT INFORMATION
  Report Type: Spontaneous
  Country: CN (occurrence: CN)
  Receive Date: 20241220
  Receipt Date: 20241220
  Transmission Date: 20250115
  Serious: Yes (Life-Threatening, Other)
  Sender: FRESENIUS KABI
  Company Number: CN-FreseniusKabi-FK202418627

PATIENT
  Age: 65 Year
  Sex: Male

DRUGS (14)
  1. INTRALIPID [Suspect]
     Active Substance: EGG PHOSPHOLIPIDS\GLYCERIN\SOYBEAN OIL
     Indication: Malnutrition
     Dosage: FORM OF ADMIN.: INJECTION
     Route: 041
     Dates: end: 20241203
  2. INTRALIPID [Suspect]
     Active Substance: EGG PHOSPHOLIPIDS\GLYCERIN\SOYBEAN OIL
     Indication: Nutritional supplementation
  3. ELECTROLYTES NOS\MINERALS\SORBITOL [Suspect]
     Active Substance: ELECTROLYTES NOS\MINERALS\SORBITOL
     Indication: Malnutrition
     Dosage: FORM OF ADMIN.: INJECTION
     Route: 041
     Dates: start: 20241130, end: 20241130
  4. ELECTROLYTES NOS\MINERALS\SORBITOL [Suspect]
     Active Substance: ELECTROLYTES NOS\MINERALS\SORBITOL
     Indication: Nutritional supplementation
     Dosage: FORM OF ADMIN.: INJECTION
     Route: 041
     Dates: start: 20241203, end: 20241203
  5. LIPOSYN (R) INTRAVENOUS FAT EMULSION [Suspect]
     Active Substance: LIPOSYN (R) INTRAVENOUS FAT EMULSION
     Indication: Malnutrition
     Dosage: FORM OF ADMIN.: INJECTION
     Route: 041
     Dates: start: 20241130, end: 20241130
  6. LIPOSYN (R) INTRAVENOUS FAT EMULSION [Suspect]
     Active Substance: LIPOSYN (R) INTRAVENOUS FAT EMULSION
     Indication: Nutritional supplementation
  7. .ALPHA.-TOCOPHEROL\ERGOCALCIFEROL\PHYTONADIONE\VITAMIN A [Suspect]
     Active Substance: .ALPHA.-TOCOPHEROL\ERGOCALCIFEROL\PHYTONADIONE\VITAMIN A
     Indication: Malnutrition
     Dosage: FORM OF ADMIN.: INJECTION
     Route: 041
     Dates: end: 20241203
  8. .ALPHA.-TOCOPHEROL\ERGOCALCIFEROL\PHYTONADIONE\VITAMIN A [Suspect]
     Active Substance: .ALPHA.-TOCOPHEROL\ERGOCALCIFEROL\PHYTONADIONE\VITAMIN A
     Indication: Nutritional supplementation
  9. VITAMINS [Suspect]
     Active Substance: VITAMINS
     Indication: Malnutrition
     Dosage: FORM OF ADMIN.: INJECTION
     Route: 041
     Dates: start: 20241130, end: 20241130
  10. VITAMINS [Suspect]
     Active Substance: VITAMINS
     Indication: Nutritional supplementation
  11. Aminic [Concomitant]
     Indication: Malnutrition
     Dosage: FORM OF ADMIN.: INJECTION
     Route: 041
     Dates: start: 20241203, end: 20241203
  12. Aminic [Concomitant]
     Indication: Nutritional supplementation
     Dosage: FORM OF ADMIN.: INJECTION
     Route: 041
     Dates: start: 20241129, end: 20241203
  13. VITAMINS [Concomitant]
     Active Substance: VITAMINS
     Indication: Malnutrition
     Dosage: FORM OF ADMIN.: INJECTION
     Route: 041
     Dates: start: 20241130, end: 20241130
  14. VITAMINS [Concomitant]
     Active Substance: VITAMINS
     Indication: Nutritional supplementation
     Dosage: FORM OF ADMIN.: POWDER FOR INJECTION
     Route: 041
     Dates: start: 20241203, end: 20241203

REACTIONS (5)
  - Haemoptysis [Recovered/Resolved]
  - Dyspnoea [Recovering/Resolving]
  - Pyrexia [Recovering/Resolving]
  - Chest discomfort [Recovering/Resolving]
  - Abdominal pain upper [Recovering/Resolving]

NARRATIVE: CASE EVENT DATE: 20241130
